FAERS Safety Report 9313452 (Version 3)
Quarter: 2013Q3

REPORT INFORMATION
  Report Type: Spontaneous
  Country: US (occurrence: US)
  Receive Date: 20130528
  Receipt Date: 20130711
  Transmission Date: 20140515
  Serious: Yes (Other)
  Sender: FDA-Public Use
  Company Number: US-ELI_LILLY_AND_COMPANY-US201305005791

PATIENT
  Sex: Female
  Weight: 65.76 kg

DRUGS (6)
  1. FORTEO [Suspect]
     Indication: OSTEOPOROSIS
     Dosage: 20 UG, QD
     Route: 058
     Dates: start: 20130329, end: 20130409
  2. LEVOTHYROXINE [Concomitant]
  3. CYTOMEL [Concomitant]
     Dosage: UNK
  4. FLONASE [Concomitant]
     Dosage: UNK
  5. VITAMIN D3 [Concomitant]
     Dosage: UNK
  6. CINNAMON [Concomitant]
     Dosage: UNK

REACTIONS (3)
  - Cardiac murmur [Unknown]
  - Palpitations [Recovered/Resolved]
  - Incorrect route of drug administration [Unknown]
